FAERS Safety Report 11002646 (Version 1)
Quarter: 2015Q2

REPORT INFORMATION
  Report Type: Spontaneous
  Country: BG (occurrence: BG)
  Receive Date: 20150408
  Receipt Date: 20150408
  Transmission Date: 20150821
  Serious: Yes (Hospitalization)
  Sender: FDA-Public Use
  Company Number: BG-ROXANE LABORATORIES, INC.-2015-RO-00581RO

PATIENT
  Age: 59 Year
  Sex: Male

DRUGS (1)
  1. METHOTREXATE [Suspect]
     Active Substance: METHOTREXATE
     Indication: PSORIASIS
     Dosage: 10 MG
     Route: 065

REACTIONS (4)
  - Bicytopenia [Recovered/Resolved]
  - Hepatitis toxic [Recovered/Resolved]
  - Staphylococcal infection [Unknown]
  - Toxicity to various agents [Recovered/Resolved]
